FAERS Safety Report 22351482 (Version 1)
Quarter: 2023Q2

REPORT INFORMATION
  Report Type: Spontaneous
  Country: US (occurrence: None)
  Receive Date: 20230522
  Receipt Date: 20230522
  Transmission Date: 20230721
  Serious: No
  Sender: FDA-Public Use
  Company Number: None

PATIENT
  Age: 62 Year
  Sex: Male
  Weight: 88.45 kg

DRUGS (10)
  1. FLUTICASONE PROPIONATE NASAL [Suspect]
     Active Substance: FLUTICASONE PROPIONATE
     Indication: Sinus congestion
     Dosage: OTHER QUANTITY : 2 SPRY BOTH NOSTRI;?FREQUENCY : DAILY;?
     Route: 045
     Dates: start: 20230309, end: 20230410
  2. METOPROLOL [Concomitant]
     Active Substance: METOPROLOL
  3. ROSUVASTATIN [Concomitant]
     Active Substance: ROSUVASTATIN
  4. LOW DOSE APR 81MG [Concomitant]
  5. REMERON [Concomitant]
     Active Substance: MIRTAZAPINE
  6. ALPRAZOLAM [Concomitant]
     Active Substance: ALPRAZOLAM
  7. CLONIZIPAM [Concomitant]
  8. VITAMIN D3 [Concomitant]
     Active Substance: CHOLECALCIFEROL
  9. ACETAMINOPHEN [Concomitant]
     Active Substance: ACETAMINOPHEN
  10. IBUPROFEN [Concomitant]
     Active Substance: IBUPROFEN

REACTIONS (1)
  - Migraine [None]

NARRATIVE: CASE EVENT DATE: 20230311
